FAERS Safety Report 13072337 (Version 2)
Quarter: 2017Q1

REPORT INFORMATION
  Report Type: Spontaneous
  Country: BR (occurrence: BR)
  Receive Date: 20161229
  Receipt Date: 20170127
  Transmission Date: 20170428
  Serious: Yes (Hospitalization)
  Sender: FDA-Public Use
  Company Number: BR-GLAXOSMITHKLINE-BR2016GSK172552

PATIENT
  Sex: Female
  Weight: 15 kg

DRUGS (1)
  1. ZINNAT [Suspect]
     Active Substance: CEFUROXIME AXETIL
     Indication: SINUSITIS
     Dosage: 3.5 ML, BID
     Route: 048
     Dates: start: 20161105

REACTIONS (6)
  - Drug ineffective [Recovered/Resolved]
  - Product quality issue [Unknown]
  - Condition aggravated [Recovered/Resolved]
  - Nasal congestion [Unknown]
  - Pyrexia [Recovered/Resolved]
  - Wrong technique in product usage process [Recovered/Resolved]
